FAERS Safety Report 14422519 (Version 1)
Quarter: 2018Q1

REPORT INFORMATION
  Report Type: Spontaneous
  Country: US (occurrence: US)
  Receive Date: 20180123
  Receipt Date: 20180123
  Transmission Date: 20180509
  Serious: No
  Sender: FDA-Public Use
  Company Number: US-ENDO PHARMACEUTICALS INC-2017-005352

PATIENT
  Age: 54 Year
  Sex: Female
  Weight: 79.82 kg

DRUGS (18)
  1. VITAMIN D                          /00107901/ [Concomitant]
     Active Substance: ERGOCALCIFEROL
     Indication: VITAMIN D DEFICIENCY
     Dosage: 50000 IU, DAILY
  2. FLEXERIL [Concomitant]
     Active Substance: CYCLOBENZAPRINE HYDROCHLORIDE
     Indication: PAIN
     Dosage: 10 MG, TID
  3. OPANA ER [Suspect]
     Active Substance: OXYMORPHONE HYDROCHLORIDE
     Indication: BACK PAIN
     Dosage: 10 MG, BID
     Route: 048
     Dates: start: 2015
  4. SYNTHROID [Concomitant]
     Active Substance: LEVOTHYROXINE SODIUM
     Indication: BASEDOW^S DISEASE
     Dosage: 0.112 UNK, DAILY
     Route: 048
  5. ZETIA [Concomitant]
     Active Substance: EZETIMIBE
     Indication: BLOOD CHOLESTEROL INCREASED
     Dosage: 10 MG, DAILY
     Route: 048
  6. CELEBREX [Concomitant]
     Active Substance: CELECOXIB
     Indication: BACK PAIN
     Dosage: 200 MG, BID
     Route: 048
  7. AMBIEN [Concomitant]
     Active Substance: ZOLPIDEM TARTRATE
     Indication: SLEEP DISORDER
     Dosage: 10 MG, DAILY
     Route: 048
  8. PRILOSEC [Concomitant]
     Active Substance: OMEPRAZOLE MAGNESIUM
     Indication: PRODUCT USED FOR UNKNOWN INDICATION
     Dosage: 30 MG, UNK
     Route: 048
  9. GABAPENTIN. [Concomitant]
     Active Substance: GABAPENTIN
     Indication: BACK PAIN
     Dosage: 300 MG, TID
     Route: 048
  10. EPINEPHRINE. [Concomitant]
     Active Substance: EPINEPHRINE
     Indication: HYPERSENSITIVITY
     Dosage: UNK, PRN
  11. ZONISAMIDE. [Concomitant]
     Active Substance: ZONISAMIDE
     Indication: MIGRAINE
     Dosage: 100 MG, DAILY
     Route: 048
  12. TRAZODONE [Concomitant]
     Active Substance: TRAZODONE HYDROCHLORIDE
     Indication: PAIN
  13. TRAZODONE [Concomitant]
     Active Substance: TRAZODONE HYDROCHLORIDE
     Indication: SLEEP DISORDER
     Dosage: 150 MG,  2 TABS BID
     Route: 048
  14. LASIX [Concomitant]
     Active Substance: FUROSEMIDE
     Indication: SWELLING
     Dosage: 80 MG, BID
  15. BUPROPION. [Concomitant]
     Active Substance: BUPROPION
     Indication: PRODUCT USED FOR UNKNOWN INDICATION
     Dosage: 150 MG, TID
     Route: 048
  16. ZYRTEC [Concomitant]
     Active Substance: CETIRIZINE HYDROCHLORIDE
     Indication: HYPERSENSITIVITY
     Dosage: 10 MG, DAILY
     Route: 048
  17. POTASSIUM CHLORIDE. [Concomitant]
     Active Substance: POTASSIUM CHLORIDE
     Indication: HYPOKALAEMIA
     Dosage: 20 MG, DAILY
     Route: 048
  18. NUCYNTA [Concomitant]
     Active Substance: TAPENTADOL HYDROCHLORIDE
     Indication: BACK PAIN
     Dosage: 50 MG, QID
     Route: 048

REACTIONS (2)
  - Drug screen negative [Unknown]
  - Drug ineffective [Unknown]

NARRATIVE: CASE EVENT DATE: 201701
